FAERS Safety Report 24235221 (Version 2)
Quarter: 2024Q4

REPORT INFORMATION
  Report Type: Report from Study
  Country: US (occurrence: US)
  Receive Date: 20240821
  Receipt Date: 20241016
  Transmission Date: 20250114
  Serious: Yes (Hospitalization, Other)
  Sender: NOVARTIS
  Company Number: US-002147023-NVSC2024US166800

PATIENT
  Sex: Female

DRUGS (4)
  1. KISQALI [Suspect]
     Active Substance: RIBOCICLIB
     Indication: Hormone receptor positive HER2 negative breast cancer
     Dosage: 3 TABLETS, QD
     Route: 048
     Dates: start: 202401, end: 202403
  2. KISQALI [Suspect]
     Active Substance: RIBOCICLIB
     Dosage: 3 TABLETS, QD
     Route: 048
     Dates: start: 202404, end: 20240506
  3. KISQALI [Suspect]
     Active Substance: RIBOCICLIB
     Dosage: 3 TABLETS, QD-ONGOING
     Route: 048
     Dates: start: 20240510
  4. FULVESTRANT [Suspect]
     Active Substance: FULVESTRANT
     Indication: Hormone receptor positive HER2 negative breast cancer
     Dosage: UNK, QMO
     Route: 065
     Dates: start: 202401

REACTIONS (7)
  - Brain neoplasm [Not Recovered/Not Resolved]
  - Brain oedema [Unknown]
  - Infection [Unknown]
  - Nausea [Unknown]
  - Fatigue [Unknown]
  - Headache [Unknown]
  - Alopecia [Unknown]

NARRATIVE: CASE EVENT DATE: 20240101
